FAERS Safety Report 4804046-0 (Version None)
Quarter: 2005Q4

REPORT INFORMATION
  Report Type: 
  Country: None (occurrence: None)
  Receive Date: 20051018
  Receipt Date: 20051018
  Transmission Date: 20060501
  Serious: Yes (Life-Threatening)
  Sender: FDA-Public Use
  Company Number: None

PATIENT
  Age: 13 Year
  Sex: Female

DRUGS (1)
  1. IFOSFAMIDE [Suspect]
     Dosage: ;;0;

REACTIONS (3)
  - AGITATION [None]
  - CONFUSIONAL STATE [None]
  - TREMOR [None]
